FAERS Safety Report 4604732-1 (Version None)
Quarter: 2005Q2

REPORT INFORMATION
  Report Type: 
  Country: None (occurrence: None)
  Receive Date: 20050217
  Receipt Date: 20041105
  Transmission Date: 20051028
  Serious: No
  Sender: FDA-Public Use
  Company Number: S04-USA-07273-01

PATIENT
  Age: 84 Year
  Sex: Female

DRUGS (6)
  1. NAMENDA [Suspect]
     Indication: DEMENTIA ALZHEIMER'S TYPE
     Dosage: 5 MG QD PO
     Route: 048
     Dates: start: 20041103
  2. ARICEPT [Concomitant]
  3. ALTACE [Concomitant]
  4. FOSAMAX [Concomitant]
  5. CALCIUM GLUCONATE [Concomitant]
  6. MULTI-VITAMIN [Concomitant]

REACTIONS (3)
  - AGGRESSION [None]
  - DECREASED APPETITE [None]
  - IRRITABILITY [None]
